FAERS Safety Report 13192582 (Version 1)
Quarter: 2017Q1

REPORT INFORMATION
  Report Type: Spontaneous
  Country: US (occurrence: US)
  Receive Date: 20170207
  Receipt Date: 20170207
  Transmission Date: 20170428
  Serious: Yes (Hospitalization)
  Sender: FDA-Public Use
  Company Number: None

PATIENT
  Age: 69 Year
  Sex: Female
  Weight: 55.35 kg

DRUGS (6)
  1. RECLAST [Suspect]
     Active Substance: ZOLEDRONIC ACID
     Indication: OSTEOPOROSIS
     Dosage: ?          OTHER FREQUENCY:ONCE A YEAR;?
     Route: 042
     Dates: start: 20161209, end: 20161209
  2. OMEPRAZOLE 20MG [Concomitant]
     Active Substance: OMEPRAZOLE
  3. CALCIUM [Concomitant]
     Active Substance: CALCIUM
  4. MAGNESIUM [Concomitant]
     Active Substance: MAGNESIUM
  5. DICYCLOMINE HCL 20MG [Concomitant]
  6. VITAMIN D3 [Concomitant]
     Active Substance: CHOLECALCIFEROL

REACTIONS (6)
  - Gastrointestinal disorder [None]
  - Pyrexia [None]
  - Weight decreased [None]
  - Eating disorder [None]
  - Pain [None]
  - Confusional state [None]

NARRATIVE: CASE EVENT DATE: 20161209
